FAERS Safety Report 8326861-1 (Version None)
Quarter: 2012Q2

REPORT INFORMATION
  Report Type: 
  Country: None (occurrence: None)
  Receive Date: 20120501
  Receipt Date: 20120418
  Transmission Date: 20120825
  Serious: Yes (Other)
  Sender: FDA-Public Use
  Company Number: GB-MYLANLABS-2012S1008010

PATIENT
  Age: 63 Year
  Sex: Male
  Weight: 70 kg

DRUGS (1)
  1. TERBINAFINE HCL [Suspect]
     Indication: NAIL INFECTION
     Route: 048
     Dates: start: 20120307, end: 20120313

REACTIONS (4)
  - DIARRHOEA [None]
  - OEDEMA PERIPHERAL [None]
  - CONSTIPATION [None]
  - INCREASED TENDENCY TO BRUISE [None]
